FAERS Safety Report 6075588-8 (Version None)
Quarter: 2009Q1

REPORT INFORMATION
  Report Type: 
  Country: None (occurrence: None)
  Receive Date: 20090212
  Receipt Date: 20090205
  Transmission Date: 20090719
  Serious: Yes (Other)
  Sender: FDA-Public Use
  Company Number: BR-ELI_LILLY_AND_COMPANY-BR200902001208

PATIENT
  Sex: Female

DRUGS (4)
  1. HUMULIN N [Suspect]
     Indication: DIABETES MELLITUS
     Dosage: 3 ML, EACH MORNING
     Route: 058
  2. HUMULIN N [Suspect]
     Dosage: 3 ML, EACH EVENING
     Route: 058
  3. PROPRANOLOL [Concomitant]
     Indication: HYPERTENSION
     Dosage: UNK, UNKNOWN
     Route: 065
  4. CAPTOPRIL [Concomitant]
     Indication: HYPERTENSION
     Dosage: UNK, UNKNOWN
     Route: 065

REACTIONS (5)
  - HAEMORRHAGE [None]
  - OPEN WOUND [None]
  - RECTAL HAEMORRHAGE [None]
  - SKIN IRRITATION [None]
  - VAGINAL HAEMORRHAGE [None]
